FAERS Safety Report 7243468-8 (Version None)
Quarter: 2011Q1

REPORT INFORMATION
  Report Type: 
  Country: None (occurrence: None)
  Receive Date: 20110119
  Receipt Date: 20110119
  Transmission Date: 20110831
  Serious: No
  Sender: FDA-Public Use
  Company Number: None

PATIENT
  Sex: Female
  Weight: 47.6277 kg

DRUGS (1)
  1. BENADRYL [Suspect]
     Indication: HYPERSENSITIVITY
     Dosage: TOOK ONE AND BROKE OUT
     Dates: start: 20110110, end: 20110116

REACTIONS (1)
  - DRUG HYPERSENSITIVITY [None]
